FAERS Safety Report 4424227-8 (Version None)
Quarter: 2004Q3

REPORT INFORMATION
  Report Type: 
  Country: None (occurrence: None)
  Receive Date: 20040809
  Receipt Date: 20040729
  Transmission Date: 20050211
  Serious: Yes (Life-Threatening, Hospitalization)
  Sender: FDA-Public Use
  Company Number: JP-JNJFOC-20040800654

PATIENT
  Age: 73 Year
  Sex: Male

DRUGS (2)
  1. ITRACONAZOLE [Suspect]
     Dosage: 100 MG, 1 IN 1 DAY, ORAL
     Route: 048
     Dates: start: 20020909, end: 20040626
  2. MANIDIPINE HYDROCHLORIDE (MANIDIPINE HYDROCHLORIDE) [Concomitant]

REACTIONS (1)
  - ULCER [None]
